FAERS Safety Report 5929591-6 (Version None)
Quarter: 2008Q4

REPORT INFORMATION
  Report Type: 
  Country: None (occurrence: None)
  Receive Date: 20081024
  Receipt Date: 20081015
  Transmission Date: 20090506
  Serious: Yes (Hospitalization, Other)
  Sender: FDA-Public Use
  Company Number: US-MERCK-0805USA00930

PATIENT
  Age: 71 Year
  Sex: Female
  Weight: 79 kg

DRUGS (7)
  1. FOSAMAX [Suspect]
     Indication: BONE DISORDER
     Route: 048
     Dates: start: 20000101, end: 20000101
  2. FOSAMAX [Suspect]
     Route: 048
     Dates: start: 20000101, end: 20050101
  3. BONIVA [Suspect]
     Indication: DYSPEPSIA
     Route: 048
     Dates: start: 20050101, end: 20071201
  4. VIVELLE [Concomitant]
     Route: 065
     Dates: start: 19900101
  5. CALCIUM CARBONATE [Concomitant]
     Route: 065
     Dates: start: 20001201
  6. DOCUSATE SODIUM [Concomitant]
     Route: 065
     Dates: start: 20001201
  7. MEDROXYPROGESTERONE ACETATE [Concomitant]
     Route: 065
     Dates: start: 19900101

REACTIONS (17)
  - ATRIAL FIBRILLATION [None]
  - DRUG INTOLERANCE [None]
  - FIBROCYSTIC BREAST DISEASE [None]
  - GASTROINTESTINAL DISORDER [None]
  - GASTROOESOPHAGEAL REFLUX DISEASE [None]
  - HEART RATE IRREGULAR [None]
  - NOCTURIA [None]
  - OEDEMA PERIPHERAL [None]
  - OESTROGEN REPLACEMENT THERAPY [None]
  - OSTEOARTHRITIS [None]
  - OSTEONECROSIS [None]
  - PALPITATIONS [None]
  - SKIN DISORDER [None]
  - SUPRAVENTRICULAR TACHYCARDIA [None]
  - TRAUMATIC HAEMATOMA [None]
  - URGE INCONTINENCE [None]
  - VENOUS INSUFFICIENCY [None]
